FAERS Safety Report 10716681 (Version 2)
Quarter: 2015Q2

REPORT INFORMATION
  Report Type: Spontaneous
  Country: JP (occurrence: JP)
  Receive Date: 20150116
  Receipt Date: 20150520
  Transmission Date: 20150821
  Serious: Yes (Death, Hospitalization)
  Sender: FDA-Public Use
  Company Number: JP-BAYER-2014-185493

PATIENT
  Age: 52 Year
  Sex: Female
  Weight: 45.81 kg

DRUGS (10)
  1. ADONA [Concomitant]
     Active Substance: CARBAZOCHROME SODIUM SULFONATE
     Dosage: DAILY DOSE 30 MG
     Route: 048
     Dates: start: 20131017, end: 20140101
  2. STIVARGA [Suspect]
     Active Substance: REGORAFENIB
     Indication: COLON CANCER
     Dosage: 20 MG, QD  ON FOR 3 WEEKS AND OFF FOR 1 WEEK
     Route: 048
     Dates: start: 20131017, end: 20131021
  3. TRANSAMIN [Concomitant]
     Active Substance: TRANEXAMIC ACID
     Dosage: DAILY DOSE 750 MG
     Route: 048
     Dates: start: 20131017, end: 20140101
  4. SEISHOKU [Concomitant]
     Active Substance: SODIUM CHLORIDE
     Indication: COMPUTERISED TOMOGRAM THORAX
     Dosage: DAILY DOSE 10 ML
     Dates: start: 20130930
  5. IOVERIN [Concomitant]
     Indication: COMPUTERISED TOMOGRAM ABDOMEN
  6. STIVARGA [Suspect]
     Active Substance: REGORAFENIB
     Indication: COLON CANCER
     Dosage: 120 MG, QD ON FOR 3 WEEKS AND OFF FOR 1 WEEK
     Route: 048
     Dates: start: 20130926, end: 20130929
  7. BIOFERMIN R [Concomitant]
     Active Substance: BACILLUS SUBTILIS\LACTOBACILLUS ACIDOPHILUS\STREPTOCOCCUS FAECAIS
     Dosage: FREQUENCY: QS
     Route: 048
     Dates: end: 20131016
  8. SELBEX [Concomitant]
     Active Substance: TEPRENONE
     Indication: PROPHYLAXIS AGAINST GASTROINTESTINAL ULCER
     Dosage: DAILY DOSE .5 G
     Route: 048
     Dates: end: 20131016
  9. SEISHOKU [Concomitant]
     Active Substance: SODIUM CHLORIDE
     Indication: COMPUTERISED TOMOGRAM ABDOMEN
  10. IOVERIN [Concomitant]
     Indication: COMPUTERISED TOMOGRAM THORAX
     Dosage: DAILY DOSE 100 ML
     Dates: start: 20130930

REACTIONS (3)
  - Gastrointestinal perforation [Recovered/Resolved]
  - Colon cancer [Fatal]
  - Peritonitis [Recovered/Resolved]

NARRATIVE: CASE EVENT DATE: 20130928
